FAERS Safety Report 11554422 (Version 2)
Quarter: 2015Q4

REPORT INFORMATION
  Report Type: Spontaneous
  Country: US (occurrence: US)
  Receive Date: 20150925
  Receipt Date: 20151016
  Transmission Date: 20160304
  Serious: Yes (Death, Hospitalization, Other)
  Sender: FDA-Public Use
  Company Number: US-INCYTE CORPORATION-2015IN004774

PATIENT
  Sex: Male
  Weight: 79.1 kg

DRUGS (11)
  1. JAKAFI [Suspect]
     Active Substance: RUXOLITINIB
     Indication: MYELOFIBROSIS
     Dosage: 10 MG, BID
     Route: 048
  2. CENTRUM SILVER                     /02363801/ [Concomitant]
     Active Substance: MINERALS\VITAMINS
     Route: 048
  3. JAKAFI [Suspect]
     Active Substance: RUXOLITINIB
     Indication: MYELOPROLIFERATIVE DISORDER
     Dosage: 5 MG, BID
     Route: 048
     Dates: start: 20140618
  4. ALLOPURINOL. [Concomitant]
     Active Substance: ALLOPURINOL
     Dosage: 200 MG, TID
     Route: 048
     Dates: end: 20150709
  5. METAXALONE. [Concomitant]
     Active Substance: METAXALONE
  6. ALLOPURINOL. [Concomitant]
     Active Substance: ALLOPURINOL
     Dosage: 200 MG, BID
     Route: 048
     Dates: start: 20150709
  7. LEVOTHYROXINE. [Concomitant]
     Active Substance: LEVOTHYROXINE
     Dosage: 25 MCG, QD
     Route: 048
  8. OMEPRAZOLE. [Concomitant]
     Active Substance: OMEPRAZOLE
     Dosage: 40 MG, QD
     Route: 048
  9. JAKAFI [Suspect]
     Active Substance: RUXOLITINIB
     Dosage: 10 MG, BID
     Route: 048
     Dates: start: 201405, end: 201507
  10. TAMSULOSIN [Concomitant]
     Active Substance: TAMSULOSIN
     Dosage: 0.4 MG, QD
     Route: 048
  11. ROPINIROLE. [Concomitant]
     Active Substance: ROPINIROLE
     Dosage: 0.25 MG, QD
     Route: 048

REACTIONS (10)
  - Blood count abnormal [Unknown]
  - Cholecystitis acute [Fatal]
  - Myelodysplastic syndrome [Not Recovered/Not Resolved]
  - Renal failure [Unknown]
  - Myeloproliferative disorder [Fatal]
  - Wound dehiscence [Unknown]
  - Hypotension [Unknown]
  - Impaired healing [Unknown]
  - Polycythaemia vera [Unknown]
  - Hypoxia [Unknown]

NARRATIVE: CASE EVENT DATE: 2015
